FAERS Safety Report 9521911 (Version 1)
Quarter: 2013Q3

REPORT INFORMATION
  Report Type: Spontaneous
  Country: US (occurrence: None)
  Receive Date: 20130911
  Receipt Date: 20130911
  Transmission Date: 20140515
  Serious: No
  Sender: FDA-Public Use
  Company Number: AEUSA201300070

PATIENT
  Age: 58 Year
  Sex: Female
  Weight: 89.36 kg

DRUGS (1)
  1. GAMUNEX-C [Suspect]
     Indication: IMMUNODEFICIENCY COMMON VARIABLE
     Route: 058
     Dates: start: 201211

REACTIONS (7)
  - Back pain [None]
  - Headache [None]
  - Nausea [None]
  - Asthenia [None]
  - Feeling abnormal [None]
  - Infusion related reaction [None]
  - Feeling abnormal [None]
